FAERS Safety Report 17208238 (Version 3)
Quarter: 2020Q1

REPORT INFORMATION
  Report Type: Spontaneous
  Country: SG (occurrence: SG)
  Receive Date: 20191227
  Receipt Date: 20200218
  Transmission Date: 20200409
  Serious: Yes (Life-Threatening, Hospitalization, Other)
  Sender: FDA-Public Use
  Company Number: SG-PFIZER INC-2019553001

PATIENT
  Age: 13 Year
  Sex: Male

DRUGS (10)
  1. METHOTREXATE. [Suspect]
     Active Substance: METHOTREXATE
     Indication: B PRECURSOR TYPE ACUTE LEUKAEMIA
     Dosage: 1 CYCLICAL
     Route: 037
  2. VINCRISTINE SULFATE. [Suspect]
     Active Substance: VINCRISTINE SULFATE
     Indication: B PRECURSOR TYPE ACUTE LEUKAEMIA
     Dosage: 1 CYCLICAL
     Route: 042
  3. ASPARAGINASE [Suspect]
     Active Substance: ASPARAGINASE
     Indication: ADJUVANT THERAPY
  4. METHOTREXATE. [Suspect]
     Active Substance: METHOTREXATE
     Indication: ADJUVANT THERAPY
  5. ASPARAGINASE [Suspect]
     Active Substance: ASPARAGINASE
     Indication: B PRECURSOR TYPE ACUTE LEUKAEMIA
     Dosage: 1 CYCLICAL
     Route: 030
  6. PREDNISOLONE. [Suspect]
     Active Substance: PREDNISOLONE
     Indication: B PRECURSOR TYPE ACUTE LEUKAEMIA
     Dosage: 1 CYCLICAL
     Route: 048
  7. DEXAMETHASONE SODIUM PHOSPHATE. [Suspect]
     Active Substance: DEXAMETHASONE SODIUM PHOSPHATE
     Indication: B PRECURSOR TYPE ACUTE LEUKAEMIA
     Dosage: 1 CYCLICAL
  8. DEXAMETHASONE SODIUM PHOSPHATE. [Suspect]
     Active Substance: DEXAMETHASONE SODIUM PHOSPHATE
     Indication: ADJUVANT THERAPY
  9. PREDNISOLONE. [Suspect]
     Active Substance: PREDNISOLONE
     Indication: ADJUVANT THERAPY
  10. VINCRISTINE SULFATE. [Suspect]
     Active Substance: VINCRISTINE SULFATE
     Indication: ADJUVANT THERAPY

REACTIONS (11)
  - Systemic mycosis [Recovered/Resolved]
  - Skin necrosis [Recovered/Resolved]
  - Acute hepatic failure [Recovered/Resolved]
  - Eczema [Recovered/Resolved]
  - Fungaemia [Recovered/Resolved]
  - Acute kidney injury [Recovered/Resolved]
  - Neutropenic sepsis [Recovered/Resolved]
  - Rash maculo-papular [Recovered/Resolved]
  - Nodule [Recovered/Resolved]
  - Acanthosis [Recovered/Resolved]
  - Septic shock [Recovered/Resolved]
